FAERS Safety Report 6823841-X (Version None)
Quarter: 2010Q3

REPORT INFORMATION
  Report Type: 
  Country: None (occurrence: None)
  Receive Date: 20100708
  Receipt Date: 20060916
  Transmission Date: 20110219
  Serious: No
  Sender: FDA-Public Use
  Company Number: US-PFIZER INC-2006113916

PATIENT
  Sex: Female

DRUGS (6)
  1. CHANTIX [Suspect]
     Indication: SMOKING CESSATION THERAPY
     Dates: start: 20060912
  2. KLONOPIN [Concomitant]
  3. SEROQUEL [Concomitant]
  4. FELDENE [Concomitant]
  5. DARVOCET [Concomitant]
  6. ANALGESICS [Concomitant]

REACTIONS (4)
  - AGITATION [None]
  - DIZZINESS [None]
  - HEADACHE [None]
  - HEART RATE INCREASED [None]
